FAERS Safety Report 16100530 (Version 3)
Quarter: 2019Q2

REPORT INFORMATION
  Report Type: Spontaneous
  Country: IT (occurrence: IT)
  Receive Date: 20190321
  Receipt Date: 20190423
  Transmission Date: 20190711
  Serious: Yes (Other)
  Sender: FDA-Public Use
  Company Number: IT-PFIZER INC-2019117210

PATIENT
  Age: 47 Year
  Sex: Female

DRUGS (12)
  1. VENLAFAXINE HCL [Suspect]
     Active Substance: VENLAFAXINE HYDROCHLORIDE
     Dosage: 14 DF, SINGLE
     Route: 048
     Dates: start: 20190225, end: 20190225
  2. VALIUM [Suspect]
     Active Substance: DIAZEPAM
     Dosage: 20 ML, SINGLE
     Route: 048
     Dates: start: 20190225, end: 20190225
  3. FELISON [Suspect]
     Active Substance: FLURAZEPAM MONOHYDROCHLORIDE
     Dosage: 30 DF, SINGLE
     Route: 048
     Dates: start: 20190225, end: 20190225
  4. CONTRAMAL [Suspect]
     Active Substance: TRAMADOL HYDROCHLORIDE
     Dosage: 20 DF, SINGLE
     Route: 048
     Dates: start: 20190225, end: 20190225
  5. TRANEX [Suspect]
     Active Substance: TRANEXAMIC ACID
     Dosage: 15 DF, SINGLE
     Route: 048
     Dates: start: 20190225, end: 20190225
  6. ALPRAZOLAM. [Suspect]
     Active Substance: ALPRAZOLAM
     Dosage: 20 DF, SINGLE
     Route: 048
     Dates: start: 20190225, end: 20190225
  7. TOPAMAX [Suspect]
     Active Substance: TOPIRAMATE
     Dosage: UNK, SINGLE
     Route: 048
     Dates: start: 20190225, end: 20190225
  8. TALOFEN [Suspect]
     Active Substance: PROMAZINE HYDROCHLORIDE
     Dosage: 2 ML, SINGLE
     Route: 048
     Dates: start: 20190225, end: 20190225
  9. DELORAZEPAM [Suspect]
     Active Substance: DELORAZEPAM
     Dosage: 2 ML, SINGLE
     Route: 048
     Dates: start: 20190225, end: 20190225
  10. EUTIROX [Suspect]
     Active Substance: LEVOTHYROXINE SODIUM
     Dosage: UNK, SINGLE
     Route: 048
     Dates: start: 20190225, end: 20190225
  11. TRITTICO [Suspect]
     Active Substance: TRAZODONE HYDROCHLORIDE
     Dosage: 40 DF, SINGLE
     Route: 048
     Dates: start: 20190225, end: 20190225
  12. DALMADORM [Suspect]
     Active Substance: FLURAZEPAM HYDROCHLORIDE
     Dosage: 15 DF, SINGLE
     Route: 048
     Dates: start: 20190225, end: 20190225

REACTIONS (4)
  - Intentional product misuse [Unknown]
  - Overdose [Unknown]
  - Intentional self-injury [Unknown]
  - Coma [Unknown]

NARRATIVE: CASE EVENT DATE: 20190225
